FAERS Safety Report 24146408 (Version 1)
Quarter: 2024Q3

REPORT INFORMATION
  Report Type: Spontaneous
  Country: PT (occurrence: PT)
  Receive Date: 20240729
  Receipt Date: 20240729
  Transmission Date: 20241016
  Serious: Yes (Hospitalization)
  Sender: HIKMA
  Company Number: PT-HIKMA PHARMACEUTICALS USA INC.-PT-H14001-24-06847

PATIENT

DRUGS (1)
  1. FUROSEMIDE [Suspect]
     Active Substance: FUROSEMIDE
     Indication: Cardiac failure
     Dosage: UNKNOWN
     Route: 065

REACTIONS (2)
  - Platypnoea-orthodeoxia syndrome [Unknown]
  - Condition aggravated [Unknown]
